FAERS Safety Report 6552849-7 (Version None)
Quarter: 2010Q1

REPORT INFORMATION
  Report Type: 
  Country: None (occurrence: None)
  Receive Date: 20100122
  Receipt Date: 20090420
  Transmission Date: 20100710
  Serious: Yes (Death)
  Sender: FDA-Public Use
  Company Number: 004490

PATIENT

DRUGS (4)
  1. PREDNISOLONE [Suspect]
     Indication: VASCULITIS NECROTISING
     Dosage: 1 MG/KG QD, 1 MG/KG/DAY ORAL, 15 MG/KG DAY ORAL,  7.5 MG QD, 7?5 MG/DAY ORAL
     Route: 048
  2. PREDNISOLONE [Suspect]
     Indication: VASCULITIS NECROTISING
     Dosage: 1 MG/KG QD, 1 MG/KG/DAY ORAL, 15 MG/KG DAY ORAL,  7.5 MG QD, 7?5 MG/DAY ORAL
     Route: 048
  3. PREDNISOLONE [Suspect]
     Indication: VASCULITIS NECROTISING
     Dosage: 1 MG/KG QD, 1 MG/KG/DAY ORAL, 15 MG/KG DAY ORAL,  7.5 MG QD, 7?5 MG/DAY ORAL
     Route: 048
  4. METHOTREXATE [Suspect]
     Indication: VASCULITIS NECROTISING

REACTIONS (1)
  - PANCREATIC CARCINOMA [None]
